FAERS Safety Report 13452823 (Version 2)
Quarter: 2017Q2

REPORT INFORMATION
  Report Type: Report from Study
  Country: CA (occurrence: CA)
  Receive Date: 20170418
  Receipt Date: 20170426
  Transmission Date: 20170830
  Serious: Yes (Other)
  Sender: FDA-Public Use
  Company Number: CA-GLAXOSMITHKLINE-CA2017GSK017588

PATIENT
  Age: 48 Year
  Sex: Female

DRUGS (20)
  1. COSENTYX [Suspect]
     Active Substance: SECUKINUMAB
     Indication: PSORIASIS
     Dosage: 150 MG, Z, QW
     Route: 058
     Dates: start: 20170208
  2. COSENTYX [Suspect]
     Active Substance: SECUKINUMAB
     Dosage: 150 MG, Z, QW
     Route: 058
     Dates: start: 201704
  3. IBUPROFEN. [Concomitant]
     Active Substance: IBUPROFEN
  4. REMICADE [Concomitant]
     Active Substance: INFLIXIMAB
  5. STELARA [Concomitant]
     Active Substance: USTEKINUMAB
  6. SIMPONI [Concomitant]
     Active Substance: GOLIMUMAB
  7. HUMIRA [Concomitant]
     Active Substance: ADALIMUMAB
  8. COSENTYX [Suspect]
     Active Substance: SECUKINUMAB
     Indication: PSORIATIC ARTHROPATHY
     Dosage: 150 MG, Z, QW
     Route: 058
     Dates: start: 20170111, end: 20170201
  9. PREDNISONE. [Concomitant]
     Active Substance: PREDNISONE
  10. OXYCONTIN [Concomitant]
     Active Substance: OXYCODONE HYDROCHLORIDE
  11. DICLOFENAC DIETHYLAMMONIUM SALT [Suspect]
     Active Substance: DICLOFENAC DIETHYLAMINE
     Indication: PRODUCT USED FOR UNKNOWN INDICATION
     Dosage: UNK UNK, QD
     Route: 065
  12. DICLOFENAC [Suspect]
     Active Substance: DICLOFENAC
     Indication: PRODUCT USED FOR UNKNOWN INDICATION
     Dosage: UNK, QD
     Route: 065
  13. CIMZIA [Concomitant]
     Active Substance: CERTOLIZUMAB PEGOL
     Dosage: UNK
     Dates: start: 201511, end: 20151222
  14. VITAMIN B12 [Concomitant]
     Active Substance: CYANOCOBALAMIN
  15. COSENTYX [Suspect]
     Active Substance: SECUKINUMAB
     Dosage: 150 MG, Z, QW
     Route: 058
     Dates: start: 20170308
  16. ENBREL [Concomitant]
     Active Substance: ETANERCEPT
  17. METHOTREXATE. [Concomitant]
     Active Substance: METHOTREXATE
     Dosage: UNK, QD
  18. NAPROXEN. [Concomitant]
     Active Substance: NAPROXEN
  19. PARIET [Concomitant]
     Active Substance: RABEPRAZOLE SODIUM
  20. MOBICOX [Concomitant]
     Active Substance: MELOXICAM

REACTIONS (4)
  - Arthralgia [Unknown]
  - Pain in extremity [Recovering/Resolving]
  - Psoriatic arthropathy [Unknown]
  - Joint swelling [Unknown]

NARRATIVE: CASE EVENT DATE: 201701
